FAERS Safety Report 9161125 (Version 1)
Quarter: 2013Q1

REPORT INFORMATION
  Report Type: Spontaneous
  Country: US (occurrence: US)
  Receive Date: 20130313
  Receipt Date: 20130313
  Transmission Date: 20140127
  Serious: Yes (Other)
  Sender: FDA-Public Use
  Company Number: US-TEVA-391373USA

PATIENT
  Sex: Female
  Weight: 69.01 kg

DRUGS (11)
  1. QNASL [Suspect]
     Indication: CHRONIC SINUSITIS
     Dosage: 320 MICROGRAM DAILY;
     Route: 055
     Dates: start: 20130114, end: 20130311
  2. QNASL [Suspect]
     Indication: NASAL POLYPS
  3. SYNTHROID [Concomitant]
  4. ALPRAZOLAM [Concomitant]
  5. AMITRIPTYLINE [Concomitant]
  6. PROTONIX [Concomitant]
  7. ASMANEX [Concomitant]
  8. PROVENTIL [Concomitant]
  9. TRAMADOL [Concomitant]
  10. XOLAIR [Concomitant]
  11. XYZAL [Concomitant]

REACTIONS (2)
  - Retinal tear [Not Recovered/Not Resolved]
  - Vitreous floaters [Not Recovered/Not Resolved]
